FAERS Safety Report 7678371-2 (Version None)
Quarter: 2011Q3

REPORT INFORMATION
  Report Type: 
  Country: None (occurrence: None)
  Receive Date: 20110811
  Receipt Date: 20110808
  Transmission Date: 20111222
  Serious: Yes (Other)
  Sender: FDA-Public Use
  Company Number: BR-ABBOTT-11P-020-0842784-00

PATIENT
  Age: 50 Year
  Sex: Male

DRUGS (1)
  1. HUMIRA [Suspect]
     Indication: PSORIASIS

REACTIONS (7)
  - PLEURAL EFFUSION [None]
  - INFLUENZA [None]
  - FATIGUE [None]
  - TUBERCULOSIS [None]
  - DECREASED APPETITE [None]
  - LISTLESS [None]
  - UNEVALUABLE EVENT [None]
